FAERS Safety Report 16716878 (Version 2)
Quarter: 2019Q4

REPORT INFORMATION
  Report Type: Other
  Country: CA (occurrence: CA)
  Receive Date: 20190819
  Receipt Date: 20191219
  Transmission Date: 20200122
  Serious: Yes (Other)
  Sender: FDA-Public Use
  Company Number: CA-BECTON DICKINSON-2019BDN00298

PATIENT
  Age: 27 Year
  Sex: Female

DRUGS (17)
  1. METFORMIN [Suspect]
     Active Substance: METFORMIN HYDROCHLORIDE
     Indication: TYPE 2 DIABETES MELLITUS
  2. NIFEDIPINE. [Suspect]
     Active Substance: NIFEDIPINE
     Indication: HYPERTENSION
     Dosage: 20 MG
     Route: 048
  3. NIFEDIPINE. [Suspect]
     Active Substance: NIFEDIPINE
     Dosage: 20 MG, 3 EVERY 1 DAY(S)
  4. SILDENAFIL. [Suspect]
     Active Substance: SILDENAFIL
     Dosage: 20 MG, 4 EVERY 1 DAY(S)
     Route: 048
  5. ACETYLSALICYLIC ACID [Suspect]
     Active Substance: ASPIRIN
     Indication: PROPHYLAXIS
  6. DEXPANTHENOL; ERGOCALCIFEROL; NICOTINAMIDE; PYRIDOXINE HYDROCHLORIDE [Suspect]
     Active Substance: DEXPANTHENOL\ERGOCALCIFEROL\NIACINAMIDE\PYRIDOXINE HYDROCHLORIDE
     Indication: PROPHYLAXIS
  7. NIFEDIPINE. [Suspect]
     Active Substance: NIFEDIPINE
     Dosage: UNK
  8. NIFEDIPINE. [Suspect]
     Active Substance: NIFEDIPINE
     Dosage: 60 MG, 2 EVERY 1 DAY(S)
  9. DICLECTIN [Suspect]
     Active Substance: DOXYLAMINE SUCCINATE\PYRIDOXINE HYDROCHLORIDE
     Indication: PROPHYLAXIS
     Route: 048
  10. METHYLDOPA. [Suspect]
     Active Substance: METHYLDOPA
     Indication: HYPERTENSION
     Route: 048
  11. NIFEDIPINE. [Suspect]
     Active Substance: NIFEDIPINE
     Dosage: 20 MG, 2 EVERY 1 DAY(S)
  12. SILDENAFIL. [Suspect]
     Active Substance: SILDENAFIL
     Indication: FOETAL GROWTH RESTRICTION
     Dosage: 20 MG, 2 EVERY 1 DAY(S)
     Route: 048
  13. INSULIN [Suspect]
     Active Substance: INSULIN NOS
     Indication: TYPE 2 DIABETES MELLITUS
     Route: 048
  14. SILDENAFIL. [Suspect]
     Active Substance: SILDENAFIL
     Dosage: UNK
     Route: 048
  15. CHLORHEXIDINE [Suspect]
     Active Substance: CHLORHEXIDINE
     Indication: GINGIVAL HYPERTROPHY
     Dosage: UNK
  16. NIFEDIPINE. [Suspect]
     Active Substance: NIFEDIPINE
     Dosage: 20 MG, 1X/DAY
  17. SILDENAFIL. [Suspect]
     Active Substance: SILDENAFIL
     Dosage: 20 MG, 3 EVERY 1 DAY(S)

REACTIONS (3)
  - Premature delivery [Unknown]
  - Maternal exposure during pregnancy [Unknown]
  - Off label use [Unknown]
